FAERS Safety Report 8561884-9 (Version None)
Quarter: 2012Q3

REPORT INFORMATION
  Report Type: 
  Country: None (occurrence: None)
  Receive Date: 20120802
  Receipt Date: 20120723
  Transmission Date: 20120928
  Serious: No
  Sender: FDA-Public Use
  Company Number: US-AMGEN-USASP2011011920

PATIENT
  Age: 59 Year
  Sex: Female
  Weight: 66.667 kg

DRUGS (11)
  1. NAPROXEN (ALEVE) [Concomitant]
     Dosage: UNK UNK, PRN
  2. METHOTREXATE [Concomitant]
     Dosage: 10 MG, QWK
  3. FOLIC ACID [Concomitant]
     Dosage: 1 MG, QWK
  4. TYLENOL (CAPLET) [Concomitant]
     Dosage: UNK UNK, PRN
  5. ENBREL [Suspect]
     Indication: RHEUMATOID ARTHRITIS
     Dosage: 50 MG, Q2WK
     Route: 058
     Dates: start: 20050801
  6. FLONASE [Concomitant]
     Dosage: UNK UNK, PRN
  7. IBUPROFEN (ADVIL) [Concomitant]
     Dosage: UNK UNK, PRN
  8. RECLAST [Concomitant]
     Dosage: 5 MG, UNK
     Route: 042
  9. VITAMINS                           /90003601/ [Concomitant]
     Dosage: UNK
  10. ENBREL [Suspect]
     Dosage: 50 MG, Q2WK
     Route: 058
     Dates: start: 20070101
  11. PREMARIN [Concomitant]
     Dosage: UNK

REACTIONS (2)
  - NASOPHARYNGITIS [None]
  - PRODUCTIVE COUGH [None]
